FAERS Safety Report 7492110-X (Version None)
Quarter: 2011Q2

REPORT INFORMATION
  Report Type: 
  Country: None (occurrence: None)
  Receive Date: 20110511
  Receipt Date: 20110427
  Transmission Date: 20111010
  Serious: Yes (Other)
  Sender: FDA-Public Use
  Company Number: 2011SP019378

PATIENT
  Age: 60 Year
  Sex: Female

DRUGS (12)
  1. METHOTREXATE [Concomitant]
  2. SINGULAIR [Concomitant]
  3. GABITRIL [Concomitant]
  4. THYROID TAB [Concomitant]
  5. PROVENTIL-HFA [Suspect]
     Indication: ASTHMA
     Dosage: 2 DF;PRN;INH
     Route: 055
     Dates: start: 20090923, end: 20090925
  6. RESTASIS [Concomitant]
  7. ESTRADIOL [Concomitant]
  8. VITAMIN D [Concomitant]
  9. ASPIRIN [Concomitant]
  10. EVOXAC [Concomitant]
  11. REQUIP [Concomitant]
  12. FOLIC ACID [Concomitant]

REACTIONS (2)
  - LOSS OF CONSCIOUSNESS [None]
  - ANAPHYLACTIC REACTION [None]
